FAERS Safety Report 4494082-9 (Version None)
Quarter: 2004Q4

REPORT INFORMATION
  Report Type: 
  Country: None (occurrence: None)
  Receive Date: 20041102
  Receipt Date: 20041018
  Transmission Date: 20050328
  Serious: Yes (Other)
  Sender: FDA-Public Use
  Company Number: 2004-0007628

PATIENT
  Sex: Female

DRUGS (5)
  1. VIREAD [Suspect]
     Indication: HIV INFECTION
     Dosage: 300 MG 1 IN 1 D ORAL
     Route: 048
     Dates: start: 20031201
  2. ZERIT [Concomitant]
  3. VIDEX [Concomitant]
  4. SUSTIVA [Concomitant]
  5. EPIVIR [Concomitant]

REACTIONS (1)
  - HEPATITIS [None]
